FAERS Safety Report 5124733-7 (Version None)
Quarter: 2006Q4

REPORT INFORMATION
  Report Type: 
  Country: None (occurrence: None)
  Receive Date: 20061011
  Receipt Date: 20061006
  Transmission Date: 20070319
  Serious: Yes (Hospitalization)
  Sender: FDA-Public Use
  Company Number: GB-AVENTIS-200620430GDDC

PATIENT

DRUGS (1)
  1. DESMOSPRAY                         /00361901/ [Suspect]
     Indication: DIABETES INSIPIDUS
     Route: 055

REACTIONS (3)
  - CIRCULATORY COLLAPSE [None]
  - FALL [None]
  - HYPONATRAEMIA [None]
